FAERS Safety Report 25583361 (Version 2)
Quarter: 2025Q3

REPORT INFORMATION
  Report Type: Spontaneous
  Country: US (occurrence: US)
  Receive Date: 20250721
  Receipt Date: 20250915
  Transmission Date: 20251021
  Serious: Yes (Hospitalization)
  Sender: ROCHE
  Company Number: US-ROCHE-10000343203

PATIENT
  Sex: Female

DRUGS (5)
  1. ACTEMRA [Suspect]
     Active Substance: TOCILIZUMAB
     Indication: Giant cell arteritis
     Dosage: STRENGTH: 400MG/20ML
     Route: 042
     Dates: start: 202506, end: 202507
  2. ACTEMRA [Suspect]
     Active Substance: TOCILIZUMAB
     Indication: Polymyalgia rheumatica
  3. FUROSEMIDE [Concomitant]
     Active Substance: FUROSEMIDE
  4. bactrium [Concomitant]
  5. METHYLPREDNISOLONE [Concomitant]
     Active Substance: METHYLPREDNISOLONE

REACTIONS (4)
  - Hypervolaemia [Unknown]
  - Gastrointestinal perforation [Unknown]
  - Cardiac failure [Unknown]
  - Thrombosis [Unknown]
